FAERS Safety Report 8016814-5 (Version None)
Quarter: 2012Q1

REPORT INFORMATION
  Report Type: 
  Country: None (occurrence: None)
  Receive Date: 20120102
  Receipt Date: 20111222
  Transmission Date: 20120608
  Serious: Yes (Hospitalization, Other)
  Sender: FDA-Public Use
  Company Number: BR-BRISTOL-MYERS SQUIBB COMPANY-16314510

PATIENT
  Age: 53 Year
  Sex: Male
  Weight: 92 kg

DRUGS (3)
  1. METFORMIN HCL [Concomitant]
     Indication: DIABETES MELLITUS
     Dosage: 1DF:6 TABS,STARTED ON 2 YEARS AGO
     Route: 048
  2. NOVOLIN 70/30 [Concomitant]
     Indication: DIABETES MELLITUS
     Dosage: STARTED ON 1 YEAR AGO,1DF:20MG MORNING AND 10MG AT NIGHT
     Route: 058
  3. IRBESARTAN + HYDROCHLOROTHIAZIDE [Suspect]
     Indication: HYPERTENSION
     Dosage: STARTED 6 YEARS AGO,FORMULATION:150MG TABS
     Route: 048

REACTIONS (1)
  - INTERVERTEBRAL DISC PROTRUSION [None]
